FAERS Safety Report 5642311-8 (Version None)
Quarter: 2008Q1

REPORT INFORMATION
  Report Type: 
  Country: None (occurrence: None)
  Receive Date: 20080225
  Receipt Date: 20080207
  Transmission Date: 20080703
  Serious: Yes (Hospitalization, Other)
  Sender: FDA-Public Use
  Company Number: CTI_00946_2008

PATIENT
  Sex: Male
  Weight: 90.7194 kg

DRUGS (3)
  1. ZYFLO CR [Suspect]
     Indication: DRUG USE FOR UNKNOWN INDICATION
     Dosage: (1200 MG BID ORAL)
     Route: 048
     Dates: start: 20080114
  2. SPIRIVA [Concomitant]
  3. SINGULAIR [Concomitant]

REACTIONS (2)
  - HYPERSENSITIVITY [None]
  - STEVENS-JOHNSON SYNDROME [None]
